FAERS Safety Report 9257330 (Version 1)
Quarter: 2013Q2

REPORT INFORMATION
  Report Type: Report from Study
  Country: US (occurrence: US)
  Receive Date: 20130426
  Receipt Date: 20130426
  Transmission Date: 20140414
  Serious: Yes (Other)
  Sender: FDA-Public Use
  Company Number: PHEH2013US009268

PATIENT
  Age: 84 Year
  Sex: Female

DRUGS (11)
  1. RECLAST [Suspect]
     Dosage: UNK UKN, UNK
     Route: 042
     Dates: start: 20120517
  2. OMEPRAZOLE [Concomitant]
     Indication: GASTROOESOPHAGEAL REFLUX DISEASE
     Dosage: 20 MG, QD
  3. METOPROLOL [Concomitant]
     Indication: BLOOD PRESSURE ABNORMAL
     Dosage: 25 MG, IN THE MORNING
  4. METOPROLOL [Concomitant]
     Dosage: 50 MG, IN THE EVENING
  5. AMLODIPINE [Concomitant]
     Indication: BLOOD PRESSURE ABNORMAL
     Dosage: 2.5 MG, IN THE MORNING
  6. BENAZEPRIL HCL [Concomitant]
     Indication: BLOOD PRESSURE ABNORMAL
     Dosage: 10 MG, QD IN THE AM
  7. LOVASTATIN [Concomitant]
     Indication: BLOOD CHOLESTEROL INCREASED
     Dosage: 40 MG, QD IN THE EVENING WITH MEAL
  8. OMEGA 3 FISH OIL [Concomitant]
     Dosage: 1000 MG, BID ONCE IN THE AM AND ONCE IN THE PM
  9. PRESERVISION LUTEIN [Concomitant]
     Dosage: IN THE MORNING AND EVENING
  10. SYSTANE [Concomitant]
     Indication: DRY EYE
     Dosage: 1 DROP IN EACH EYE 3-4 TIMES A DAY
  11. CALCIUM +VIT D [Concomitant]
     Dosage: UNK UKN, BID

REACTIONS (11)
  - Abasia [Unknown]
  - Transient ischaemic attack [Unknown]
  - Abnormal faeces [Unknown]
  - Sinus disorder [Unknown]
  - Nasal dryness [Unknown]
  - Syncope [Unknown]
  - Feeling abnormal [Unknown]
  - Chromaturia [Recovered/Resolved]
  - Diarrhoea [Recovered/Resolved]
  - Dizziness [Unknown]
  - Influenza like illness [Unknown]
